FAERS Safety Report 5975429-0 (Version None)
Quarter: 2008Q4

REPORT INFORMATION
  Report Type: 
  Country: None (occurrence: None)
  Receive Date: 20081202
  Receipt Date: 20080917
  Transmission Date: 20090506
  Serious: No
  Sender: FDA-Public Use
  Company Number: US-AMGEN-KDL308424

PATIENT
  Sex: Female

DRUGS (1)
  1. ENBREL [Suspect]
     Indication: RHEUMATOID ARTHRITIS
     Route: 058
     Dates: start: 20050315

REACTIONS (5)
  - ARTHRALGIA [None]
  - CONTUSION [None]
  - RHEUMATOID ARTHRITIS [None]
  - STRESS FRACTURE [None]
  - VASCULAR INJURY [None]
